FAERS Safety Report 12784363 (Version 1)
Quarter: 2016Q3

REPORT INFORMATION
  Report Type: Spontaneous
  Country: DE (occurrence: DE)
  Receive Date: 20160927
  Receipt Date: 20160927
  Transmission Date: 20161109
  Serious: Yes (Other)
  Sender: FDA-Public Use
  Company Number: DE-BEH-SAGL-LD/01/10/GFR

PATIENT
  Age: 81 Year
  Sex: Female
  Weight: 61 kg

DRUGS (3)
  1. ALPHAGLOBIN [Concomitant]
     Dates: start: 20000920
  2. INTRIMUN [Concomitant]
     Dates: start: 20001213
  3. SANDOGLOBULIN [Suspect]
     Active Substance: HUMAN IMMUNOGLOBULIN G
     Indication: ANTIBODY TEST ABNORMAL
     Dosage: DAILY DOSE QUANTITY: 5, DAILY DOSE UNIT: G
     Route: 042
     Dates: start: 20001113, end: 20001113

REACTIONS (2)
  - Chills [Unknown]
  - Anaphylactic reaction [Recovered/Resolved]

NARRATIVE: CASE EVENT DATE: 20001113
